FAERS Safety Report 19557055 (Version 5)
Quarter: 2021Q3

REPORT INFORMATION
  Report Type: Report from Study
  Country: CA (occurrence: CA)
  Receive Date: 20210714
  Receipt Date: 20210910
  Transmission Date: 20211014
  Serious: Yes (Other)
  Sender: FDA-Public Use
  Company Number: CA-UCBSA-2021032734

PATIENT
  Age: 68 Year
  Sex: Female

DRUGS (2)
  1. CERTOLIZUMAB PEGOL AUTOCLICKS [Suspect]
     Active Substance: CERTOLIZUMAB PEGOL
     Dosage: 200 MILLIGRAM, EV 2 WEEKS(QOW)
     Route: 058
     Dates: end: 20210602
  2. CERTOLIZUMAB PEGOL AUTOCLICKS [Suspect]
     Active Substance: CERTOLIZUMAB PEGOL
     Indication: RHEUMATOID ARTHRITIS
     Dosage: 400 MILLIGRAM, EV 2 WEEKS(QOW)
     Route: 058
     Dates: start: 20200512

REACTIONS (7)
  - Oral discomfort [Not Recovered/Not Resolved]
  - Productive cough [Unknown]
  - Candida infection [Unknown]
  - Gingival swelling [Not Recovered/Not Resolved]
  - Musculoskeletal discomfort [Unknown]
  - Tooth extraction [Recovered/Resolved]
  - Oral pain [Recovering/Resolving]

NARRATIVE: CASE EVENT DATE: 2021
